FAERS Safety Report 7545580-2 (Version None)
Quarter: 2011Q2

REPORT INFORMATION
  Report Type: 
  Country: None (occurrence: None)
  Receive Date: 20110614
  Receipt Date: 20110531
  Transmission Date: 20111010
  Serious: No
  Sender: FDA-Public Use
  Company Number: US-B.I. PHARMACEUTICALS,INC./RIDGEFIELD-2011-BP-11072BP

PATIENT
  Age: 83 Year
  Sex: Female

DRUGS (15)
  1. RESTASIS [Concomitant]
     Indication: DRY EYE
  2. MAGNESIUM SULFATE [Concomitant]
     Indication: ROUTINE HEALTH MAINTENANCE
  3. METOPROLOL [Concomitant]
     Indication: ATRIAL FIBRILLATION
  4. Q10 [Concomitant]
     Indication: ROUTINE HEALTH MAINTENANCE
  5. PRADAXA [Suspect]
     Indication: ATRIAL FIBRILLATION
     Dosage: 300 MG
     Route: 048
  6. LANOXIN [Concomitant]
     Indication: ATRIAL FIBRILLATION
  7. VITAMIN E [Concomitant]
     Indication: ROUTINE HEALTH MAINTENANCE
  8. DIOVAN [Concomitant]
     Indication: HYPERTENSION
  9. INSULIN [Concomitant]
     Indication: DIABETES MELLITUS
  10. ASPIRIN [Concomitant]
     Indication: ROUTINE HEALTH MAINTENANCE
  11. PRADAXA [Suspect]
     Indication: ARRHYTHMIA
     Dosage: 300 MG
     Route: 048
     Dates: start: 20110414
  12. CHROMIUM CHLORIDE [Concomitant]
     Indication: ROUTINE HEALTH MAINTENANCE
  13. ASCORBIC ACID [Concomitant]
     Indication: ROUTINE HEALTH MAINTENANCE
  14. VITAMIN B COMPLEX CAP [Concomitant]
     Indication: ROUTINE HEALTH MAINTENANCE
  15. VITAMIN D [Concomitant]
     Indication: ROUTINE HEALTH MAINTENANCE

REACTIONS (3)
  - MELAENA [None]
  - HAEMORRHOIDS [None]
  - RECTAL HAEMORRHAGE [None]
